FAERS Safety Report 15501911 (Version 1)
Quarter: 2018Q4

REPORT INFORMATION
  Report Type: Spontaneous
  Country: US (occurrence: US)
  Receive Date: 20181015
  Receipt Date: 20181015
  Transmission Date: 20190205
  Serious: No
  Sender: FDA-Public Use
  Company Number: US-AMGEN-USASP2018064018

PATIENT
  Age: 65 Year
  Sex: Male
  Weight: 76.4 kg

DRUGS (6)
  1. FLONASE [Concomitant]
     Active Substance: FLUTICASONE PROPIONATE
     Indication: MULTIPLE ALLERGIES
     Dosage: UNK
     Route: 045
  2. PROCRIT [Suspect]
     Active Substance: ERYTHROPOIETIN
     Dosage: 60000 UNIT, Q2WK
     Route: 058
     Dates: start: 201802
  3. PROCRIT [Suspect]
     Active Substance: ERYTHROPOIETIN
     Indication: CHRONIC MYELOID LEUKAEMIA
     Dosage: 40 UNIT, ONE TIME DOSE
     Route: 058
     Dates: start: 20170711, end: 20170711
  4. PROCRIT [Suspect]
     Active Substance: ERYTHROPOIETIN
     Dosage: 60000 UNIT, Q2WK
     Route: 058
     Dates: start: 20170817, end: 20170917
  5. BACTRIM [Concomitant]
     Active Substance: SULFAMETHOXAZOLE\TRIMETHOPRIM
     Dosage: UNK (ONE TABLET ON MONDAY, WEDNESDAY, AND FRIDAY)
     Route: 048
  6. ACYCLOVIR. [Concomitant]
     Active Substance: ACYCLOVIR
     Dosage: 400 MG, BID

REACTIONS (3)
  - Haematocrit decreased [Unknown]
  - Drug effect incomplete [Not Recovered/Not Resolved]
  - Exposure to communicable disease [Not Recovered/Not Resolved]

NARRATIVE: CASE EVENT DATE: 20180426
